FAERS Safety Report 4332188-5 (Version None)
Quarter: 2004Q1

REPORT INFORMATION
  Report Type: 
  Country: None (occurrence: None)
  Receive Date: 20040329
  Receipt Date: 20040312
  Transmission Date: 20041129
  Serious: Yes (Hospitalization)
  Sender: FDA-Public Use
  Company Number: 192804

PATIENT
  Age: 62 Year
  Sex: Male

DRUGS (1)
  1. AVONEX [Suspect]
     Indication: MULTIPLE SCLEROSIS
     Dosage: 30 MCG QW IM
     Route: 030
     Dates: start: 20021009

REACTIONS (6)
  - CALCULUS BLADDER [None]
  - CONDITION AGGRAVATED [None]
  - CYSTITIS [None]
  - HAEMORRHAGE URINARY TRACT [None]
  - NEUROGENIC BLADDER [None]
  - STAPHYLOCOCCAL INFECTION [None]
